FAERS Safety Report 6463194-2 (Version None)
Quarter: 2009Q4

REPORT INFORMATION
  Report Type: 
  Country: None (occurrence: None)
  Receive Date: 20091130
  Receipt Date: 20091125
  Transmission Date: 20100525
  Serious: No
  Sender: FDA-Public Use
  Company Number: US-B.I. PHARMACEUTICALS,INC./RIDGEFIELD-2009-BP-11816BP

PATIENT
  Sex: Male
  Weight: 233.2 kg

DRUGS (13)
  1. SPIRIVA [Suspect]
     Indication: CHRONIC OBSTRUCTIVE PULMONARY DISEASE
     Dosage: 18 MCG
     Route: 055
     Dates: start: 20091006, end: 20091007
  2. FUROSEMIDE [Concomitant]
     Route: 048
  3. POTASSIUM CHLORIDE (K-DUR) [Concomitant]
     Dosage: 40 MEQ
     Route: 048
  4. VALPROIC ACID [Concomitant]
     Dosage: 3000 MG
     Route: 048
  5. SYNTHROID [Concomitant]
     Route: 048
  6. MOEXIPRIL-HCTZ (UNIRETIC) [Concomitant]
     Route: 048
  7. LORTAB [Concomitant]
     Indication: PAIN
     Route: 048
  8. LORTAB [Concomitant]
     Indication: COUGH
  9. AMOXICILLIN [Concomitant]
     Route: 048
  10. VENTOLIN HFA [Concomitant]
     Indication: COUGH
     Dosage: 2 PUF
     Route: 055
  11. METFORMIN HCL [Concomitant]
     Dosage: 500 MG
     Route: 048
  12. NIACIN [Concomitant]
     Dosage: 500 MG
     Route: 048
  13. ERGOCALCIFEROL [Concomitant]
     Route: 048

REACTIONS (1)
  - PRURITUS [None]
